FAERS Safety Report 5479018-6 (Version None)
Quarter: 2007Q4

REPORT INFORMATION
  Report Type: 
  Country: None (occurrence: None)
  Receive Date: 20071006
  Receipt Date: 20070927
  Transmission Date: 20080405
  Serious: Yes (Other)
  Sender: FDA-Public Use
  Company Number: US-PFIZER INC-2007081952

PATIENT
  Sex: Female
  Weight: 62.727 kg

DRUGS (3)
  1. CHANTIX [Suspect]
     Indication: SMOKING CESSATION THERAPY
     Dates: start: 20070923, end: 20070925
  2. NICOTROL [Suspect]
     Indication: SMOKING CESSATION THERAPY
  3. LAMISIL [Suspect]
     Indication: FUNGAL INFECTION

REACTIONS (8)
  - DEPRESSION [None]
  - EYE SWELLING [None]
  - LIP SWELLING [None]
  - PRECANCEROUS CELLS PRESENT [None]
  - PRURITUS [None]
  - RASH [None]
  - SURGERY [None]
  - URTICARIA [None]
